FAERS Safety Report 6895293-5 (Version None)
Quarter: 2010Q3

REPORT INFORMATION
  Report Type: 
  Country: None (occurrence: None)
  Receive Date: 20100802
  Receipt Date: 20100723
  Transmission Date: 20110219
  Serious: No
  Sender: FDA-Public Use
  Company Number: JP-MERCK-1005USA00904

PATIENT
  Age: 74 Year
  Sex: Female

DRUGS (5)
  1. JANUVIA [Suspect]
     Indication: TYPE 2 DIABETES MELLITUS
     Route: 048
     Dates: start: 20100326, end: 20100506
  2. AMARYL [Concomitant]
     Route: 065
  3. LIPITOR [Concomitant]
     Route: 065
  4. NORVASC [Concomitant]
     Route: 065
  5. ARIMIDEX [Concomitant]
     Route: 065

REACTIONS (3)
  - MALAISE [None]
  - MUSCULAR WEAKNESS [None]
  - MYALGIA [None]
